FAERS Safety Report 17969496 (Version 2)
Quarter: 2020Q3

REPORT INFORMATION
  Report Type: Spontaneous
  Country: FR (occurrence: FR)
  Receive Date: 20200701
  Receipt Date: 20200713
  Transmission Date: 20201103
  Serious: Yes (Hospitalization, Other)
  Sender: FDA-Public Use
  Company Number: FR-CHIESI USA, INC.-FR-2020CHI000490

PATIENT

DRUGS (8)
  1. ATROPINE. [Concomitant]
     Active Substance: ATROPINE
     Indication: PRODUCT USED FOR UNKNOWN INDICATION
     Dosage: UNK
     Route: 065
     Dates: start: 20191127
  2. CUROSURF [Suspect]
     Active Substance: PORACTANT ALFA
     Indication: NEONATAL RESPIRATORY DISTRESS SYNDROME
     Dosage: UNK
     Route: 007
     Dates: start: 20191127
  3. SUFENTANIL [Concomitant]
     Active Substance: SUFENTANIL
     Indication: SEDATION
     Dosage: UNK
     Route: 065
     Dates: start: 20191127
  4. ADRENALINE                         /00003901/ [Concomitant]
     Active Substance: EPINEPHRINE
     Indication: PRODUCT USED FOR UNKNOWN INDICATION
     Dosage: UNK
     Route: 042
     Dates: start: 20191127
  5. KETAMINE [Concomitant]
     Active Substance: KETAMINE
     Indication: SEDATION
     Dosage: UNK
     Route: 065
     Dates: start: 20191127
  6. PROPOFOL. [Concomitant]
     Active Substance: PROPOFOL
     Indication: PRODUCT USED FOR UNKNOWN INDICATION
     Dosage: 0.5 MG/KG X 2
     Route: 065
     Dates: start: 20191127
  7. MIDAZOLAM. [Concomitant]
     Active Substance: MIDAZOLAM
     Indication: SEDATION
     Dosage: UNK
     Route: 065
     Dates: start: 20191127
  8. CUROSURF [Suspect]
     Active Substance: PORACTANT ALFA
     Dosage: UNK
     Route: 007
     Dates: start: 201911

REACTIONS (7)
  - Subcutaneous emphysema [Recovered/Resolved with Sequelae]
  - Bradycardia neonatal [Recovered/Resolved]
  - Neonatal hypoxia [Recovered/Resolved with Sequelae]
  - Neonatal pneumothorax [Recovered/Resolved with Sequelae]
  - Bronchopulmonary dysplasia [Not Recovered/Not Resolved]
  - Pulmonary arterial hypertension [Recovered/Resolved with Sequelae]
  - Hypothermia neonatal [Recovered/Resolved with Sequelae]

NARRATIVE: CASE EVENT DATE: 201911
